FAERS Safety Report 5329345-8 (Version None)
Quarter: 2007Q2

REPORT INFORMATION
  Report Type: 
  Country: None (occurrence: None)
  Receive Date: 20070518
  Receipt Date: 20070508
  Transmission Date: 20071010
  Serious: Yes (Hospitalization, Other)
  Sender: FDA-Public Use
  Company Number: US-PFIZER INC-2007038710

PATIENT
  Sex: Male

DRUGS (6)
  1. NEURONTIN [Suspect]
  2. PEGASYS [Suspect]
     Indication: HEPATITIS C
     Dosage: DAILY DOSE:180MCG
     Route: 058
     Dates: start: 20060331, end: 20070302
  3. RIBAVIRIN [Suspect]
     Indication: HEPATITIS C
     Dosage: DAILY DOSE:1200MG
     Route: 048
     Dates: start: 20060331, end: 20070302
  4. ALL OTHER THERAPEUTIC PRODUCTS [Concomitant]
  5. NORCO [Concomitant]
  6. PROZAC [Concomitant]
     Dates: start: 20061215

REACTIONS (10)
  - ANAEMIA [None]
  - ANGER [None]
  - COORDINATION ABNORMAL [None]
  - DIZZINESS [None]
  - GAIT DISTURBANCE [None]
  - MALAISE [None]
  - NEUROPATHY PERIPHERAL [None]
  - OEDEMA PERIPHERAL [None]
  - SUICIDAL IDEATION [None]
  - VIRAL LOAD INCREASED [None]
